FAERS Safety Report 22178465 (Version 2)
Quarter: 2023Q2

REPORT INFORMATION
  Report Type: Spontaneous
  Country: HK (occurrence: HK)
  Receive Date: 20230405
  Receipt Date: 20230425
  Transmission Date: 20230722
  Serious: Yes (Other)
  Sender: FDA-Public Use
  Company Number: HK-BAYER-2023A040272

PATIENT
  Age: 56 Year
  Sex: Male

DRUGS (7)
  1. STIVARGA [Suspect]
     Active Substance: REGORAFENIB
     Indication: Colorectal cancer metastatic
     Dosage: 80 MG, QD
     Dates: start: 201909, end: 202001
  2. STIVARGA [Suspect]
     Active Substance: REGORAFENIB
     Indication: Metastases to liver
     Dosage: 120 MG, QD
     Dates: start: 202001, end: 202002
  3. STIVARGA [Suspect]
     Active Substance: REGORAFENIB
     Indication: Metastases to lung
  4. STIVARGA [Suspect]
     Active Substance: REGORAFENIB
     Indication: Metastases to lymph nodes
  5. STIVARGA [Suspect]
     Active Substance: REGORAFENIB
     Indication: Metastases to bone
  6. NIVOLUMAB [Concomitant]
     Active Substance: NIVOLUMAB
     Indication: Colorectal cancer metastatic
     Dosage: 3 MG/KG
     Dates: start: 201909, end: 202001
  7. NIVOLUMAB [Concomitant]
     Active Substance: NIVOLUMAB
     Indication: Colorectal cancer metastatic
     Dosage: 480 MG, Q4WK
     Dates: start: 202001

REACTIONS (5)
  - Colorectal cancer metastatic [None]
  - Metastases to bone [None]
  - Rash [None]
  - Palmar-plantar erythrodysaesthesia syndrome [None]
  - Off label use [None]

NARRATIVE: CASE EVENT DATE: 20190101
